FAERS Safety Report 24238329 (Version 1)
Quarter: 2024Q3

REPORT INFORMATION
  Report Type: Other
  Country: ES (occurrence: ES)
  Receive Date: 20240822
  Receipt Date: 20240822
  Transmission Date: 20241016
  Serious: Yes (Other)
  Sender: BIOCON
  Company Number: ES-EMA-DD-20180203-devashreeevhpdd-164103

PATIENT

DRUGS (14)
  1. ADALIMUMAB [Suspect]
     Active Substance: ADALIMUMAB
     Indication: Inflammatory bowel disease
     Dosage: 40 MG, WEEKLY (QW)
     Route: 065
     Dates: start: 201410
  2. AZATHIOPRINE [Suspect]
     Active Substance: AZATHIOPRINE
     Indication: Inflammatory bowel disease
     Dosage: UNKNOWN DOSE
     Route: 065
  3. GRANULOCYTE COLONY-STIMULATING FACTOR NOS [Suspect]
     Active Substance: GRANULOCYTE COLONY-STIMULATING FACTOR NOS
     Indication: Inflammatory bowel disease
     Dosage: UNK
     Route: 065
  4. INFLIXIMAB [Suspect]
     Active Substance: INFLIXIMAB
     Indication: Immunodeficiency common variable
     Dosage: POWDER FOR INJECTION
     Route: 065
  5. INFLIXIMAB [Suspect]
     Active Substance: INFLIXIMAB
     Dosage: POWDER FOR INJECTION
     Route: 042
  6. BUDESONIDE [Suspect]
     Active Substance: BUDESONIDE
     Indication: Inflammatory bowel disease
     Dosage: UNK
     Route: 065
  7. MESALAMINE [Suspect]
     Active Substance: MESALAMINE
     Indication: Inflammatory bowel disease
     Dosage: UNKNOWN DOSE
     Route: 065
  8. METHYLPREDNISOLONE SODIUM SUCCINATE [Suspect]
     Active Substance: METHYLPREDNISOLONE SODIUM SUCCINATE
     Indication: Inflammatory bowel disease
     Dosage: UNK
     Route: 065
  9. FILGRASTIM [Suspect]
     Active Substance: FILGRASTIM
     Indication: Inflammatory bowel disease
     Dosage: UNK
     Route: 065
  10. USTEKINUMAB [Concomitant]
     Active Substance: USTEKINUMAB
     Indication: Immunodeficiency common variable
     Dosage: 90 MG, EV 8 WEEKS
     Route: 058
     Dates: start: 2014
  11. USTEKINUMAB [Concomitant]
     Active Substance: USTEKINUMAB
     Indication: Small intestinal obstruction
     Dosage: 180-MG LOADING DOSE
     Route: 058
     Dates: start: 2014
  12. USTEKINUMAB [Concomitant]
     Active Substance: USTEKINUMAB
     Indication: Inflammatory bowel disease
  13. USTEKINUMAB [Concomitant]
     Active Substance: USTEKINUMAB
     Indication: Perforation
  14. USTEKINUMAB [Concomitant]
     Active Substance: USTEKINUMAB
     Indication: Fistula

REACTIONS (9)
  - Intestinal fistula [Recovered/Resolved]
  - Periumbilical abscess [Recovered/Resolved]
  - Campylobacter gastroenteritis [Recovered/Resolved]
  - Gastroenteritis clostridial [Recovered/Resolved]
  - Intestinal perforation [Recovered/Resolved]
  - Cytomegalovirus enteritis [Recovered/Resolved]
  - Small intestinal obstruction [Recovered/Resolved]
  - Off label use [Unknown]
  - Drug ineffective [Unknown]

NARRATIVE: CASE EVENT DATE: 20141001
